FAERS Safety Report 9161101 (Version 2)
Quarter: 2013Q1

REPORT INFORMATION
  Report Type: Spontaneous
  Country: US (occurrence: US)
  Receive Date: 20130313
  Receipt Date: 20130319
  Transmission Date: 20140127
  Serious: Yes (Death)
  Sender: FDA-Public Use
  Company Number: CHPA2013US004476

PATIENT
  Age: 92 Year
  Sex: Female

DRUGS (1)
  1. VOLTAREN GEL [Suspect]
     Indication: ARTHRALGIA
     Dosage: UNK, UNK
     Route: 061

REACTIONS (2)
  - Cardiac disorder [Fatal]
  - Off label use [Unknown]
